FAERS Safety Report 6694749-8 (Version None)
Quarter: 2010Q2

REPORT INFORMATION
  Report Type: 
  Country: None (occurrence: None)
  Receive Date: 20100423
  Receipt Date: 20100419
  Transmission Date: 20101027
  Serious: Yes (Other)
  Sender: FDA-Public Use
  Company Number: A0856362A

PATIENT
  Age: 44 Year
  Sex: Male
  Weight: 122.7 kg

DRUGS (5)
  1. PAXIL [Suspect]
     Dosage: 20MG AT NIGHT
     Route: 048
  2. GELNIQUE [Suspect]
     Dosage: 1PACK PER DAY
     Route: 061
     Dates: start: 20100201, end: 20100317
  3. RISPERDAL [Suspect]
     Dosage: 3MG AT NIGHT
     Route: 048
  4. SYNTHROID [Concomitant]
  5. METOPROLOL TARTRATE [Concomitant]

REACTIONS (8)
  - AGGRESSION [None]
  - APPLICATION SITE RASH [None]
  - DRUG INTERACTION [None]
  - HYPERSENSITIVITY [None]
  - IRRITABILITY [None]
  - OEDEMA PERIPHERAL [None]
  - SKIN LACERATION [None]
  - WOUND HAEMORRHAGE [None]
